FAERS Safety Report 4786920-7 (Version None)
Quarter: 2005Q3

REPORT INFORMATION
  Report Type: 
  Country: None (occurrence: None)
  Receive Date: 20050930
  Receipt Date: 20050921
  Transmission Date: 20060218
  Serious: Yes (Death)
  Sender: FDA-Public Use
  Company Number: HQWYE604622SEP05

PATIENT
  Age: 51 Year

DRUGS (3)
  1. PHENERGAN [Suspect]
     Dosage: OVERDOSE AMOUNT UNKNOWN
     Dates: start: 20040101, end: 20040101
  2. CYCLOBENZAPRINE HCL [Suspect]
     Dosage: OVERDOSE AMOUNT UNKNOWN
     Dates: start: 20040101, end: 20040101
  3. ZOLPIDEM TARTRATE [Suspect]
     Dosage: OVERDOSE AMOUNT UNKNOWN
     Dates: start: 20040101, end: 20040101

REACTIONS (5)
  - CARDIAC ARREST [None]
  - DRUG ABUSER [None]
  - INTENTIONAL MISUSE [None]
  - MULTIPLE DRUG OVERDOSE [None]
  - RESPIRATORY ARREST [None]
